FAERS Safety Report 7168780-2 (Version None)
Quarter: 2010Q4

REPORT INFORMATION
  Report Type: 
  Country: None (occurrence: None)
  Receive Date: 20101216
  Receipt Date: 20101202
  Transmission Date: 20110411
  Serious: Yes (Hospitalization)
  Sender: FDA-Public Use
  Company Number: DE-AMGEN-DEUCT2010003166

PATIENT

DRUGS (5)
  1. ENBREL [Suspect]
     Indication: RHEUMATOID ARTHRITIS
     Dosage: 50 MG, QWK
     Route: 058
     Dates: start: 20090901, end: 20101001
  2. LANTAREL [Suspect]
     Indication: PRODUCT USED FOR UNKNOWN INDICATION
     Dosage: 15MG, FREQUENCY UNKNOWN
     Dates: end: 20101001
  3. CLEXANE [Concomitant]
     Dosage: UNKNOWN
     Route: 058
  4. PREDNISOLONE [Concomitant]
  5. FALITHROM [Concomitant]

REACTIONS (2)
  - CAECITIS [None]
  - COLON NEOPLASM [None]
